FAERS Safety Report 16606724 (Version 5)
Quarter: 2019Q4

REPORT INFORMATION
  Report Type: Spontaneous
  Country: US (occurrence: US)
  Receive Date: 20190722
  Receipt Date: 20191205
  Transmission Date: 20200122
  Serious: Yes (Hospitalization, Other)
  Sender: FDA-Public Use
  Company Number: US-SUN PHARMACEUTICAL INDUSTRIES LTD-2019R1-212627

PATIENT
  Sex: Female

DRUGS (2)
  1. AMBRISENTAN [Suspect]
     Active Substance: AMBRISENTAN
     Indication: PRODUCT USED FOR UNKNOWN INDICATION
     Dosage: 10 MILLIGRAM, DAILY
     Route: 048
     Dates: start: 20190603
  2. UPTRAVI [Concomitant]
     Active Substance: SELEXIPAG
     Indication: PRODUCT USED FOR UNKNOWN INDICATION
     Dosage: 1400 MICROGRAM, BID
     Route: 065

REACTIONS (9)
  - Dyspnoea [Unknown]
  - Pulmonary arterial hypertension [Unknown]
  - Amnesia [Unknown]
  - Thrombosis [Unknown]
  - Pneumonia [Unknown]
  - Weight decreased [Unknown]
  - Fall [Unknown]
  - Nerve injury [Unknown]
  - Hypotension [Unknown]

NARRATIVE: CASE EVENT DATE: 2019
